FAERS Safety Report 17271629 (Version 2)
Quarter: 2020Q1

REPORT INFORMATION
  Report Type: Spontaneous
  Country: US (occurrence: US)
  Receive Date: 20200115
  Receipt Date: 20200316
  Transmission Date: 20200409
  Serious: Yes (Hospitalization, Other)
  Sender: FDA-Public Use
  Company Number: US-SA-2020SA009403

PATIENT
  Age: 30 Year
  Sex: Male

DRUGS (9)
  1. DUPIXENT [Suspect]
     Active Substance: DUPILUMAB
     Dosage: 300 MG, QOW
     Dates: start: 2019, end: 201912
  2. MOMETASONE [Concomitant]
     Active Substance: MOMETASONE
     Dosage: UNK UNK, PRN
  3. BENADRYL [Concomitant]
     Active Substance: DIPHENHYDRAMINE HYDROCHLORIDE
     Dosage: UNK
     Dates: start: 20200302
  4. DUPIXENT [Suspect]
     Active Substance: DUPILUMAB
     Indication: ECZEMA
     Dosage: 600 MG, 1X
     Dates: start: 20190719, end: 20190719
  5. TACROLIMUS. [Concomitant]
     Active Substance: TACROLIMUS
     Indication: ECZEMA
     Dosage: UNK UNK, BID
  6. TRIAMCINOLONE [Concomitant]
     Active Substance: TRIAMCINOLONE
     Indication: ECZEMA
  7. EUCRISA [Concomitant]
     Active Substance: CRISABOROLE
     Indication: ECZEMA
  8. ACYCLOVIR [ACICLOVIR] [Concomitant]
     Active Substance: ACYCLOVIR
     Indication: HERPES ZOSTER
  9. ZYRTEC [Concomitant]
     Active Substance: CETIRIZINE HYDROCHLORIDE
     Indication: PRURITUS

REACTIONS (4)
  - Pyrexia [Unknown]
  - Haemolytic anaemia [Unknown]
  - Nasopharyngitis [Unknown]
  - Immunodeficiency common variable [Unknown]

NARRATIVE: CASE EVENT DATE: 2019
